FAERS Safety Report 7518576-4 (Version None)
Quarter: 2011Q2

REPORT INFORMATION
  Report Type: 
  Country: None (occurrence: None)
  Receive Date: 20110601
  Receipt Date: 20110601
  Transmission Date: 20111010
  Serious: Yes (Hospitalization, Other)
  Sender: FDA-Public Use
  Company Number: None

PATIENT
  Sex: Female
  Weight: 70.3075 kg

DRUGS (6)
  1. CALCIUM CARBONATE [Concomitant]
  2. VITAMIN D [Concomitant]
  3. FOSAMAX [Suspect]
     Indication: OSTEOPENIA
     Dosage: 1 / DAY
     Route: 048
     Dates: start: 19990501, end: 20091210
  4. FOSAMAX [Suspect]
     Indication: OSTEOPOROSIS
     Dosage: 1 / DAY
     Route: 048
     Dates: start: 19990501, end: 20091210
  5. RECLAST [Suspect]
     Indication: OSTEOPOROSIS
     Dosage: 1/ YEAR  IV DRIP/ ONCE
     Route: 041
     Dates: start: 20091210, end: 20091210
  6. RECLAST [Suspect]
     Indication: OSTEOPENIA
     Dosage: 1/ YEAR  IV DRIP/ ONCE
     Route: 041
     Dates: start: 20091210, end: 20091210

REACTIONS (6)
  - FEMUR FRACTURE [None]
  - GAIT DISTURBANCE [None]
  - PAIN IN EXTREMITY [None]
  - SPINAL FRACTURE [None]
  - FALL [None]
  - FRACTURE [None]
